FAERS Safety Report 12787574 (Version 3)
Quarter: 2016Q4

REPORT INFORMATION
  Report Type: Spontaneous
  Country: JP (occurrence: JP)
  Receive Date: 20160928
  Receipt Date: 20161124
  Transmission Date: 20170207
  Serious: Yes (Hospitalization)
  Sender: FDA-Public Use
  Company Number: JP-ROCHE-1835530

PATIENT
  Age: 66 Year
  Sex: Female
  Weight: 47 kg

DRUGS (13)
  1. BROTIZOLAM [Concomitant]
     Active Substance: BROTIZOLAM
     Dosage: DOSAGE IS UNCERTAIN.
     Route: 048
     Dates: end: 20160725
  2. VALPROATE [Concomitant]
     Active Substance: VALPROIC ACID
     Dosage: DOSAGE IS UNCERTAIN.
     Route: 048
     Dates: start: 20160726
  3. INCREMIN (JAPAN) [Concomitant]
     Dosage: DOSAGE IS UNCERTAIN.
     Route: 048
     Dates: end: 20160725
  4. NEUROVITAN (JAPAN) [Concomitant]
     Dosage: DOSAGE IS UNCERTAIN.
     Route: 048
     Dates: start: 20160726
  5. MAGMITT [Concomitant]
     Active Substance: MAGNESIUM OXIDE
     Dosage: DOSAGE IS UNCERTAIN.
     Route: 048
     Dates: start: 20160726
  6. ONEALFA [Concomitant]
     Active Substance: ALFACALCIDOL
     Dosage: DOSAGE IS UNCERTAIN.
     Route: 048
     Dates: start: 20160726
  7. TRAMAL [Concomitant]
     Active Substance: TRAMADOL
     Dosage: DOSAGE IS UNCERTAIN.
     Route: 048
     Dates: end: 20160725
  8. RIVOTRIL [Suspect]
     Active Substance: CLONAZEPAM
     Indication: EPILEPSY
     Dosage: THE FRACTIONATION DOSE FREQUENCY IS UNCERTAIN. ?DOSE INTERVAL UNCERTAINTY
     Route: 048
     Dates: start: 20160615, end: 20160729
  9. CARBOCISTEINE [Concomitant]
     Active Substance: CARBOCYSTEINE
     Dosage: DOSAGE IS UNCERTAIN.
     Route: 048
     Dates: end: 20160725
  10. BIO-THREE [Concomitant]
     Active Substance: HERBALS
     Dosage: DOSAGE IS UNCERTAIN.
     Route: 048
     Dates: start: 20160726
  11. FERROMIA [Concomitant]
     Active Substance: FERROUS CITRATE
     Dosage: DOSAGE IS UNCERTAIN.
     Route: 048
     Dates: start: 20160726
  12. VITANEURIN [Concomitant]
     Dosage: DOSAGE IS UNCERTAIN.
     Route: 048
     Dates: end: 20160725
  13. ALFAROL [Concomitant]
     Active Substance: ALFACALCIDOL
     Dosage: DOSAGE IS UNCERTAIN.
     Route: 048
     Dates: end: 20160725

REACTIONS (1)
  - Anaemia [Recovered/Resolved]

NARRATIVE: CASE EVENT DATE: 20160722
